FAERS Safety Report 24546449 (Version 4)
Quarter: 2024Q4

REPORT INFORMATION
  Report Type: Spontaneous
  Country: CO (occurrence: CO)
  Receive Date: 20241024
  Receipt Date: 20241226
  Transmission Date: 20250115
  Serious: No
  Sender: PFIZER
  Company Number: CO-PFIZER INC-PV202400136257

PATIENT
  Age: 14 Year
  Sex: Female

DRUGS (2)
  1. GENOTROPIN [Suspect]
     Active Substance: SOMATROPIN
     Indication: Short stature
     Dosage: 1.6 MG, DAILY
     Route: 058
     Dates: start: 202408
  2. ANASTROZOLE [Concomitant]
     Active Substance: ANASTROZOLE
     Indication: Short stature

REACTIONS (8)
  - Device issue [Unknown]
  - Device leakage [Unknown]
  - Device difficult to use [Recovered/Resolved]
  - Injection site pain [Unknown]
  - Off label use [Unknown]
  - Accidental exposure to product [Unknown]
  - Exposure via skin contact [Unknown]
  - Pyrexia [Recovered/Resolved]

NARRATIVE: CASE EVENT DATE: 20241001
